FAERS Safety Report 12464784 (Version 1)
Quarter: 2016Q2

REPORT INFORMATION
  Report Type: Spontaneous
  Country: CH (occurrence: CH)
  Receive Date: 20160614
  Receipt Date: 20160614
  Transmission Date: 20160815
  Serious: Yes (Hospitalization, Other)
  Sender: FDA-Public Use
  Company Number: CH-PFIZER INC-2016292363

PATIENT
  Age: 82 Year
  Sex: Male
  Weight: 90 kg

DRUGS (14)
  1. TOREM /01036501/ [Concomitant]
     Active Substance: TORSEMIDE
     Dosage: UNK
     Dates: start: 20160513
  2. SORTIS [Suspect]
     Active Substance: ATORVASTATIN
     Dosage: 40 MG, 1X/DAY (1-0-0-0)
  3. ALDACTONE [Concomitant]
     Active Substance: SPIRONOLACTONE
     Dosage: 12.5 MG, 1X/DAY (25 MG TABLET: 0-0.5-0-0)
     Dates: end: 20160510
  4. CONCOR [Concomitant]
     Active Substance: BISOPROLOL FUMARATE
     Dosage: 2.5 MG, 1X/DAY (1-0-0-0)
  5. DAFALGAN [Concomitant]
     Active Substance: ACETAMINOPHEN
     Dosage: 1 G, 3X/DAY (1-1-0-1)
  6. ROCALTROL [Concomitant]
     Active Substance: CALCITRIOL
     Dosage: UNK
     Dates: start: 20160513
  7. JANUVIA [Concomitant]
     Active Substance: SITAGLIPTIN PHOSPHATE
     Dosage: 50 MG, 1X/DAY (1-0-0-0)
     Dates: end: 20160510
  8. JANUVIA [Concomitant]
     Active Substance: SITAGLIPTIN PHOSPHATE
     Dosage: UNK
     Dates: start: 20160518
  9. ROCALTROL [Concomitant]
     Active Substance: CALCITRIOL
     Dosage: 0.25 UG, 1X/DAY (1-0-0-0)
     Dates: end: 20160510
  10. LEVEMIR [Concomitant]
     Active Substance: INSULIN DETEMIR
     Dosage: 65 IU, DAILY (15-0-50-0)
  11. XARELTO [Interacting]
     Active Substance: RIVAROXABAN
     Indication: ATRIAL FIBRILLATION
     Dosage: 15 MG, 1X/DAY (1-0-0-0)
     Dates: start: 201409, end: 20160510
  12. VASCORD /06230801/ [Concomitant]
     Dosage: 50 MG (40/10), 1X/DAY (1-0-0-0)
     Dates: end: 20160510
  13. ALLOPUR [Concomitant]
     Active Substance: ALLOPURINOL
     Dosage: 100 MG, 1X/DAY (1-0-0-0)
     Dates: end: 20160510
  14. TOREM /01036501/ [Concomitant]
     Active Substance: TORSEMIDE
     Dosage: 10 MG, 5X/DAY (5-0-0-0)
     Dates: end: 20160510

REACTIONS (11)
  - Diverticulum intestinal [Unknown]
  - Iron deficiency anaemia [Recovering/Resolving]
  - Duodenal ulcer [Unknown]
  - Gastrooesophageal reflux disease [Unknown]
  - Chronic gastritis [Unknown]
  - Acute kidney injury [Recovered/Resolved]
  - Gastric ulcer [Unknown]
  - Potentiating drug interaction [Recovered/Resolved]
  - Hiatus hernia [Unknown]
  - Large intestine polyp [Unknown]
  - Upper gastrointestinal haemorrhage [Recovered/Resolved]

NARRATIVE: CASE EVENT DATE: 201602
